FAERS Safety Report 8180614-6 (Version None)
Quarter: 2012Q1

REPORT INFORMATION
  Report Type: 
  Country: None (occurrence: None)
  Receive Date: 20120302
  Receipt Date: 20120222
  Transmission Date: 20120608
  Serious: Yes (Disabling, Other)
  Sender: FDA-Public Use
  Company Number: FR-JNJFOC-20120212737

PATIENT
  Age: 70 Year
  Sex: Male

DRUGS (3)
  1. ZYTIGA [Suspect]
     Indication: PRODUCT USED FOR UNKNOWN INDICATION
     Route: 048
  2. PREDNISOLONE [Concomitant]
     Indication: PRODUCT USED FOR UNKNOWN INDICATION
     Route: 065
  3. ACETAMINOPHEN AND TRAMADOL HCL [Concomitant]
     Indication: PAIN
     Route: 065

REACTIONS (2)
  - PAIN IN EXTREMITY [None]
  - PARALYSIS [None]
